FAERS Safety Report 22597791 (Version 2)
Quarter: 2023Q2

REPORT INFORMATION
  Report Type: Spontaneous
  Country: BR (occurrence: BR)
  Receive Date: 20230614
  Receipt Date: 20230630
  Transmission Date: 20230722
  Serious: Yes (Hospitalization, Other)
  Sender: FDA-Public Use
  Company Number: BR-BoehringerIngelheim-2023-BI-242480

PATIENT
  Age: 101 Year
  Sex: Female
  Weight: 43 kg

DRUGS (13)
  1. OLODATEROL HYDROCHLORIDE\TIOTROPIUM BROMIDE MONOHYDRATE [Suspect]
     Active Substance: OLODATEROL HYDROCHLORIDE\TIOTROPIUM BROMIDE MONOHYDRATE
     Indication: Chronic obstructive pulmonary disease
     Dosage: 2 PUFFS AFTER LUNCH
     Route: 055
     Dates: start: 202305, end: 20230523
  2. OLODATEROL HYDROCHLORIDE\TIOTROPIUM BROMIDE MONOHYDRATE [Suspect]
     Active Substance: OLODATEROL HYDROCHLORIDE\TIOTROPIUM BROMIDE MONOHYDRATE
     Dosage: FROM 24-MAY-2023 TO 02-JUN-2023 SHE STARTED TO USE IT AT NIGHT
     Route: 055
     Dates: start: 20230524, end: 20230602
  3. SPIRIVA RESPIMAT [Suspect]
     Active Substance: TIOTROPIUM BROMIDE
     Indication: Product used for unknown indication
     Dosage: 2 PUFFS AT NIGHT.
     Route: 055
     Dates: start: 2021, end: 202305
  4. DILTIAZEM [Suspect]
     Active Substance: DILTIAZEM
     Indication: Hypotension
     Dosage: ONE TABLET IN THE MORNING
     Route: 048
     Dates: end: 202304
  5. DILTIAZEM [Suspect]
     Active Substance: DILTIAZEM
     Indication: Drug therapy
     Dosage: 2 TABLETS IN THE MORNING,
     Route: 048
     Dates: start: 202304, end: 20230602
  6. Plenil [Concomitant]
     Indication: Chronic obstructive pulmonary disease
     Dosage: ONE PUFF PER DAY
     Route: 055
     Dates: start: 202305
  7. LOSARTAN POTASSIUM [Concomitant]
     Active Substance: LOSARTAN POTASSIUM
     Indication: Hypertension
     Dosage: ONE TABLET IN THE MORNING AND ONE TABLET AT NIGHT
     Route: 048
     Dates: start: 2013
  8. DULOXETINE HYDROCHLORIDE [Concomitant]
     Active Substance: DULOXETINE HYDROCHLORIDE
     Indication: Anxiety
     Dosage: ONE TABLET PER DAY IN THE MORNING
     Route: 048
     Dates: start: 202210
  9. DULOXETINE HYDROCHLORIDE [Concomitant]
     Active Substance: DULOXETINE HYDROCHLORIDE
     Indication: Depression
  10. XARELTO [Concomitant]
     Active Substance: RIVAROXABAN
     Indication: Cardiac disorder
     Dosage: UNIQUE MILLIGRAM, ONE TABLET A DAY AFTER LUNCH
     Route: 048
     Dates: start: 2020
  11. XARELTO [Concomitant]
     Active Substance: RIVAROXABAN
     Indication: Blood cholesterol
  12. Dexilante [Concomitant]
     Indication: Gastric disorder
     Dosage: ONE TABLET IN THE MORNING
     Route: 048
     Dates: start: 2022
  13. SIMVASTATIN [Concomitant]
     Active Substance: SIMVASTATIN
     Indication: Blood cholesterol
     Dosage: ONE TABLET AT NIGHT
     Route: 048
     Dates: start: 2013

REACTIONS (6)
  - Seizure [Unknown]
  - Intussusception [Unknown]
  - Abdominal pain [Unknown]
  - Weight decreased [Not Recovered/Not Resolved]
  - Muscle spasms [Recovered/Resolved]
  - Somnolence [Recovered/Resolved]

NARRATIVE: CASE EVENT DATE: 20230201
